FAERS Safety Report 6826342-8 (Version None)
Quarter: 2010Q3

REPORT INFORMATION
  Report Type: 
  Country: None (occurrence: None)
  Receive Date: 20100709
  Receipt Date: 20100707
  Transmission Date: 20110219
  Serious: Yes (Death, Hospitalization, Other)
  Sender: FDA-Public Use
  Company Number: PHHY2010US28795

PATIENT
  Sex: Female
  Weight: 59 kg

DRUGS (1)
  1. EXJADE [Suspect]
     Indication: SICKLE CELL ANAEMIA
     Dosage: 1125 MG DAILY
     Route: 048
     Dates: start: 20100413

REACTIONS (3)
  - PERIORBITAL OEDEMA [None]
  - SICKLE CELL ANAEMIA WITH CRISIS [None]
  - SWELLING [None]
